FAERS Safety Report 12010978 (Version 5)
Quarter: 2018Q3

REPORT INFORMATION
  Report Type: Report from Study
  Country: US (occurrence: US)
  Receive Date: 20160205
  Receipt Date: 20180920
  Transmission Date: 20181010
  Serious: Yes (Hospitalization)
  Sender: FDA-Public Use
  Company Number: US-ACTELION-A-NJ2016-130885

PATIENT
  Age: 28 Year
  Sex: Male

DRUGS (3)
  1. REMODULIN [Concomitant]
     Active Substance: TREPROSTINIL
  2. OPSUMIT [Suspect]
     Active Substance: MACITENTAN
     Indication: PULMONARY ARTERIAL HYPERTENSION
     Dosage: 10 MG, QD
     Route: 048
     Dates: start: 20150822
  3. COUMADIN [Concomitant]
     Active Substance: WARFARIN SODIUM

REACTIONS (9)
  - Pyrexia [Recovered/Resolved]
  - Hospitalisation [Unknown]
  - Catheter site inflammation [Unknown]
  - Supraventricular tachycardia [Unknown]
  - Cardiac disorder [Unknown]
  - Arrhythmia [Unknown]
  - Catheter site erythema [Unknown]
  - Ventricular extrasystoles [Unknown]
  - Device issue [Unknown]

NARRATIVE: CASE EVENT DATE: 20160104
